FAERS Safety Report 8529351-6 (Version None)
Quarter: 2012Q2

REPORT INFORMATION
  Report Type: 
  Country: None (occurrence: None)
  Receive Date: 20120406
  Receipt Date: 20110404
  Transmission Date: 20120825
  Serious: Yes (Other)
  Sender: FDA-Public Use
  Company Number: US-2011-10218

PATIENT
  Age: 29 Year
  Sex: Female

DRUGS (7)
  1. TACROLIMUS [Concomitant]
  2. FLUDARABINE PHOSPHATE [Concomitant]
  3. PHENYTOIN (PHENYTOIN) [Concomitant]
  4. FILGASTIM (FILGASTIM) [Concomitant]
  5. METHOTREXATE SODIUM [Concomitant]
  6. BUSULFEX [Suspect]
     Indication: STEM CELL TRANSPLANT
     Dosage: IV DRIP
     Route: 041
  7. ANTI THYMOCYTE GLOBULIN (ANTI THYMOCYTE GLOBULIN) [Concomitant]

REACTIONS (2)
  - CHRONIC GRAFT VERSUS HOST DISEASE [None]
  - ACUTE GRAFT VERSUS HOST DISEASE [None]
